FAERS Safety Report 10635773 (Version 1)
Quarter: 2014Q4

REPORT INFORMATION
  Report Type: Spontaneous
  Country: DE (occurrence: DE)
  Receive Date: 20141205
  Receipt Date: 20141205
  Transmission Date: 20150529
  Serious: Yes (Hospitalization)
  Sender: FDA-Public Use
  Company Number: DE-ELI_LILLY_AND_COMPANY-DE201411010426

PATIENT
  Age: 54 Year
  Sex: Female

DRUGS (3)
  1. TAVOR [Concomitant]
     Active Substance: LORAZEPAM
     Indication: PRODUCT USED FOR UNKNOWN INDICATION
     Dosage: 2MG, DAILY
     Route: 048
     Dates: start: 201404, end: 20140704
  2. ZYPREXA [Concomitant]
     Active Substance: OLANZAPINE
     Indication: PRODUCT USED FOR UNKNOWN INDICATION
     Dosage: 5MG, DAILY
     Route: 048
     Dates: start: 201404
  3. CYMBALTA [Suspect]
     Active Substance: DULOXETINE HYDROCHLORIDE
     Indication: PRODUCT USED FOR UNKNOWN INDICATION
     Dosage: 30MG, DAILY
     Route: 048
     Dates: start: 20140521, end: 20140602

REACTIONS (4)
  - Enuresis [Recovered/Resolved]
  - Micturition urgency [Recovered/Resolved]
  - Renal cyst [Unknown]
  - Incontinence [Recovered/Resolved]

NARRATIVE: CASE EVENT DATE: 20140530
